FAERS Safety Report 23413999 (Version 4)
Quarter: 2024Q2

REPORT INFORMATION
  Report Type: Spontaneous
  Country: JP (occurrence: JP)
  Receive Date: 20240117
  Receipt Date: 20240606
  Transmission Date: 20240716
  Serious: Yes (Other)
  Sender: FDA-Public Use
  Company Number: JP-002147023-NVSJ2023JP018042

PATIENT
  Sex: Female

DRUGS (13)
  1. LUTATHERA [Suspect]
     Active Substance: LUTETIUM OXODOTREOTIDE LU-177
     Indication: Pancreatic neuroendocrine tumour metastatic
     Dosage: 7.4 GBQ
     Route: 042
     Dates: start: 202301, end: 202301
  2. LUTATHERA [Suspect]
     Active Substance: LUTETIUM OXODOTREOTIDE LU-177
     Indication: Insulinoma
     Dosage: UNK GBQ
     Route: 042
  3. LUTATHERA [Suspect]
     Active Substance: LUTETIUM OXODOTREOTIDE LU-177
     Dosage: UNK GBQ
     Route: 042
  4. METYRAPONE [Concomitant]
     Active Substance: METYRAPONE
     Indication: Cushing^s syndrome
     Dosage: 1000 MG
     Route: 065
  5. METYRAPONE [Concomitant]
     Active Substance: METYRAPONE
     Dosage: 500 MG
     Route: 065
  6. OSILODROSTAT [Concomitant]
     Active Substance: OSILODROSTAT
     Indication: Cushing^s syndrome
     Dosage: 8 MG
     Route: 065
  7. OSILODROSTAT [Concomitant]
     Active Substance: OSILODROSTAT
     Dosage: 4 MG
     Route: 065
  8. CORTRIL [Concomitant]
     Active Substance: HYDROCORTISONE
     Indication: Cushing^s syndrome
     Dosage: 10 MG
     Route: 065
  9. CORTRIL [Concomitant]
     Active Substance: HYDROCORTISONE
     Dosage: 100 MG
     Route: 065
  10. CORTRIL [Concomitant]
     Active Substance: HYDROCORTISONE
     Dosage: 30 MG
     Route: 065
  11. CORTRIL [Concomitant]
     Active Substance: HYDROCORTISONE
     Dosage: 10 MG
     Route: 065
  12. OPIUM TINCTURE [Concomitant]
     Active Substance: MORPHINE
     Indication: Diarrhoea
     Dosage: UNK
     Route: 048
  13. LOPERAMIDE [Concomitant]
     Active Substance: LOPERAMIDE
     Indication: Diarrhoea
     Dosage: 1 DOSAGE FORM, QD
     Route: 048

REACTIONS (7)
  - Carcinoid crisis [Recovered/Resolved]
  - Altered state of consciousness [Unknown]
  - Vomiting [Unknown]
  - Diarrhoea [Unknown]
  - ACTH-producing pituitary tumour [Recovered/Resolved]
  - Bleeding time prolonged [Recovering/Resolving]
  - Hypoglycaemia [Unknown]

NARRATIVE: CASE EVENT DATE: 20230101
